FAERS Safety Report 24283425 (Version 1)
Quarter: 2024Q3

REPORT INFORMATION
  Report Type: Spontaneous
  Country: MX (occurrence: MX)
  Receive Date: 20240904
  Receipt Date: 20240904
  Transmission Date: 20241017
  Serious: Yes (Hospitalization)
  Sender: JOHNSON AND JOHNSON
  Company Number: MX-BAYER-2024A126750

PATIENT
  Age: 80 Year
  Sex: Male
  Weight: 45 kg

DRUGS (3)
  1. RIVAROXABAN [Suspect]
     Active Substance: RIVAROXABAN
     Indication: Product used for unknown indication
     Dosage: 2.5 MG, BID
     Route: 048
     Dates: start: 20240426
  2. RIVAROXABAN [Suspect]
     Active Substance: RIVAROXABAN
     Indication: Cardiovascular disorder
     Dosage: 10 MG, QD
     Route: 048
     Dates: start: 202404
  3. RIVAROXABAN [Suspect]
     Active Substance: RIVAROXABAN
     Indication: Skin discolouration

REACTIONS (1)
  - Cerebral microinfarction [Unknown]
